FAERS Safety Report 10301809 (Version 1)
Quarter: 2014Q3

REPORT INFORMATION
  Report Type: Spontaneous
  Country: US (occurrence: US)
  Receive Date: 20140714
  Receipt Date: 20140714
  Transmission Date: 20150326
  Serious: Yes (Hospitalization)
  Sender: FDA-Public Use
  Company Number: US-BAYER-2014-101848

PATIENT
  Age: 19 Year
  Sex: Male

DRUGS (2)
  1. GADAVIST [Suspect]
     Active Substance: GADOBUTROL
     Indication: ABDOMEN SCAN
  2. GADAVIST [Suspect]
     Active Substance: GADOBUTROL
     Indication: LIVER SCAN
     Dosage: 8 MG, ONCE
     Dates: start: 20140702, end: 20140702

REACTIONS (6)
  - Nasal discomfort [None]
  - Eye swelling [None]
  - Erythema [None]
  - Sneezing [None]
  - Pruritus [None]
  - Nausea [None]

NARRATIVE: CASE EVENT DATE: 20140702
